FAERS Safety Report 6194268-1 (Version None)
Quarter: 2009Q2

REPORT INFORMATION
  Report Type: 
  Country: None (occurrence: None)
  Receive Date: 20090514
  Receipt Date: 20090429
  Transmission Date: 20091009
  Serious: Yes (Hospitalization, Other)
  Sender: FDA-Public Use
  Company Number: DSM-2009-00482

PATIENT
  Age: 81 Year
  Sex: Female

DRUGS (5)
  1. OLMESARTAN MEDOXOMIL AND HYDROCHLOROTHIZIDE [Suspect]
     Indication: HYPERTENSION
     Dosage: 20/12.5 MG,ORAL
     Route: 048
     Dates: start: 20061230, end: 20081003
  2. OLMESARTAN MEDOXOMIL AND HYDROCHLOROTHIZIDE [Suspect]
     Indication: HYPERTENSION
     Dosage: 20/12.5 MG,ORAL
     Route: 048
     Dates: start: 20081001, end: 20081201
  3. OLMESARTAN MEDOXOMIL AND HYDROCHLOROTHIZIDE [Suspect]
     Indication: HYPERTENSION
     Dosage: 20/12.5 MG,ORAL
     Route: 048
     Dates: start: 20090101, end: 20090101
  4. TRAMADOL HCL [Concomitant]
  5. CODOLIPRANE (CODEINE PHOSPHATE, PARACETAMOL) (CODEINE PHOSPHATE, PARAC [Concomitant]

REACTIONS (13)
  - ANOREXIA [None]
  - COLITIS [None]
  - DEHYDRATION [None]
  - DIARRHOEA [None]
  - ESCHERICHIA URINARY TRACT INFECTION [None]
  - HAEMODYNAMIC INSTABILITY [None]
  - HYPOKALAEMIA [None]
  - METABOLIC ACIDOSIS [None]
  - OEDEMA [None]
  - RECTAL POLYP [None]
  - RECTAL ULCER [None]
  - RENAL FAILURE ACUTE [None]
  - WEIGHT INCREASED [None]
